FAERS Safety Report 7011772-4 (Version None)
Quarter: 2010Q3

REPORT INFORMATION
  Report Type: 
  Country: None (occurrence: None)
  Receive Date: 20100923
  Receipt Date: 20090615
  Transmission Date: 20110219
  Serious: No
  Sender: FDA-Public Use
  Company Number: US-WYE-H09770509

PATIENT
  Sex: Female
  Weight: 81.72 kg

DRUGS (2)
  1. PREMARIN [Suspect]
     Indication: MOOD SWINGS
     Route: 048
     Dates: start: 20090405, end: 20090614
  2. PREMARIN [Suspect]
     Indication: HOT FLUSH

REACTIONS (4)
  - BREAST DISCHARGE [None]
  - BREAST INDURATION [None]
  - BREAST PAIN [None]
  - UNEVALUABLE EVENT [None]
